FAERS Safety Report 17702932 (Version 2)
Quarter: 2021Q4

REPORT INFORMATION
  Report Type: Report from Study
  Country: US (occurrence: US)
  Receive Date: 20200423
  Receipt Date: 20211102
  Transmission Date: 20220303
  Serious: Yes (Other)
  Sender: FDA-Public Use
  Company Number: US-JAZZ-2020-US-002895

PATIENT
  Sex: Male

DRUGS (13)
  1. XYREM [Suspect]
     Active Substance: SODIUM OXYBATE
     Indication: Hypersomnia
     Dosage: 2.25 GRAM, BID
     Route: 048
     Dates: start: 202002, end: 2020
  2. XYREM [Suspect]
     Active Substance: SODIUM OXYBATE
     Dosage: 2.5 GRAM, BID
     Route: 048
     Dates: start: 2020
  3. XYREM [Suspect]
     Active Substance: SODIUM OXYBATE
     Dosage: 2.5 GRAM, FIRST DOSE
     Route: 048
  4. XYREM [Suspect]
     Active Substance: SODIUM OXYBATE
     Dosage: 2.75 GRAM,SECOND DOSE
     Route: 048
  5. XYREM [Suspect]
     Active Substance: SODIUM OXYBATE
     Dosage: 3 GRAM, BID
     Route: 048
     Dates: start: 2020
  6. ATENOLOL [Concomitant]
     Active Substance: ATENOLOL
     Indication: Product used for unknown indication
  7. BETAMETHASONE [Concomitant]
     Active Substance: BETAMETHASONE
     Indication: Product used for unknown indication
  8. CALCITRIOL [Concomitant]
     Active Substance: CALCITRIOL
     Indication: Product used for unknown indication
  9. CLOBETASOL PROPIONATE [Concomitant]
     Active Substance: CLOBETASOL PROPIONATE
     Indication: Product used for unknown indication
  10. LISINOPRIL [Concomitant]
     Active Substance: LISINOPRIL
     Indication: Product used for unknown indication
  11. SILDENAFIL [Concomitant]
     Active Substance: SILDENAFIL
     Indication: Product used for unknown indication
  12. TYLENOL EXTRA STRENGTH [Concomitant]
     Active Substance: ACETAMINOPHEN
     Indication: Product used for unknown indication
  13. ZOLPIDEM TARTRATE [Concomitant]
     Active Substance: ZOLPIDEM TARTRATE
     Indication: Product used for unknown indication
     Dosage: UNK
     Dates: end: 202002

REACTIONS (11)
  - Hypertension [Recovering/Resolving]
  - Peripheral coldness [Not Recovered/Not Resolved]
  - Paraesthesia oral [Not Recovered/Not Resolved]
  - Hypoaesthesia oral [Not Recovered/Not Resolved]
  - Headache [Not Recovered/Not Resolved]
  - Fatigue [Not Recovered/Not Resolved]
  - Anxiety [Not Recovered/Not Resolved]
  - Psoriasis [Not Recovered/Not Resolved]
  - Prostatomegaly [Not Recovered/Not Resolved]
  - Condition aggravated [Not Recovered/Not Resolved]
  - Off label use [Unknown]

NARRATIVE: CASE EVENT DATE: 20200101
